FAERS Safety Report 6974345-5 (Version None)
Quarter: 2010Q3

REPORT INFORMATION
  Report Type: 
  Country: None (occurrence: None)
  Receive Date: 20100909
  Receipt Date: 20100831
  Transmission Date: 20110219
  Serious: Yes (Hospitalization, Other)
  Sender: FDA-Public Use
  Company Number: PHFR2010GB00870

PATIENT
  Sex: Female

DRUGS (4)
  1. CLOZARIL [Suspect]
     Indication: SCHIZOPHRENIA
     Dosage: 450 MG/DAY
     Route: 048
     Dates: start: 20080613
  2. AMISULPRIDE [Concomitant]
     Dosage: 600MG/DAY
     Route: 048
     Dates: start: 20080529
  3. RANITIDINE [Concomitant]
     Dosage: 150MG/DAY
     Route: 048
     Dates: start: 20100716
  4. VALPROIC ACID [Concomitant]
     Dosage: UNK
     Route: 048
     Dates: start: 20080613

REACTIONS (5)
  - COLON OPERATION [None]
  - GASTROINTESTINAL CARCINOMA [None]
  - HAEMOGLOBIN DECREASED [None]
  - HAEMORRHAGE [None]
  - PLATELET COUNT INCREASED [None]
